FAERS Safety Report 5860485-0 (Version None)
Quarter: 2008Q3

REPORT INFORMATION
  Report Type: 
  Country: None (occurrence: None)
  Receive Date: 20080827
  Receipt Date: 20070927
  Transmission Date: 20090109
  Serious: No
  Sender: FDA-Public Use
  Company Number: US-ABBOTT-07P-163-0418530-00

PATIENT
  Sex: Female
  Weight: 58.112 kg

DRUGS (7)
  1. COATED PDS [Suspect]
     Indication: BLOOD TRIGLYCERIDES INCREASED
     Dosage: AT HS
     Route: 048
     Dates: start: 20070926
  2. COATED PDS [Suspect]
     Indication: HIGH DENSITY LIPOPROTEIN DECREASED
  3. OLMESARTAN MEDOXOMIL [Concomitant]
     Indication: HYPERTENSION
     Route: 048
  4. LORATADINE [Concomitant]
     Indication: SEASONAL ALLERGY
     Route: 048
  5. IBANDRONATE SODIUM [Concomitant]
     Indication: OSTEOPOROSIS
     Route: 048
  6. ACETAMINOPHEN [Concomitant]
     Indication: PAIN
     Route: 048
  7. MACROGOL [Concomitant]
     Indication: CONSTIPATION
     Route: 048

REACTIONS (1)
  - PRURITUS [None]
